FAERS Safety Report 13153703 (Version 6)
Quarter: 2017Q2

REPORT INFORMATION
  Report Type: Spontaneous
  Country: JP (occurrence: JP)
  Receive Date: 20170126
  Receipt Date: 20170623
  Transmission Date: 20170830
  Serious: Yes (Death)
  Sender: FDA-Public Use
  Company Number: JP-GLAXOSMITHKLINE-JP2017GSK010209

PATIENT
  Age: 78 Year
  Sex: Male

DRUGS (3)
  1. OMEGA-3-ACID ETHYL ESTERS. [Suspect]
     Active Substance: OMEGA-3-ACID ETHYL ESTERS
     Indication: HYPERLIPIDAEMIA
     Dosage: 2 G, 1D
     Route: 048
     Dates: start: 20160314
  2. WARFARIN POTASSIUM [Concomitant]
     Active Substance: WARFARIN POTASSIUM
  3. MEVALOTIN [Concomitant]
     Active Substance: PRAVASTATIN SODIUM

REACTIONS (2)
  - Obstructive airways disorder [Fatal]
  - Vomiting [Fatal]

NARRATIVE: CASE EVENT DATE: 20170101
